FAERS Safety Report 7047971-5 (Version None)
Quarter: 2010Q4

REPORT INFORMATION
  Report Type: 
  Country: None (occurrence: None)
  Receive Date: 20101015
  Receipt Date: 20101008
  Transmission Date: 20110411
  Serious: Yes (Death, Hospitalization)
  Sender: FDA-Public Use
  Company Number: A0791283A

PATIENT
  Age: 62 Year
  Sex: Male

DRUGS (1)
  1. AVANDIA [Suspect]
     Indication: DIABETES MELLITUS
     Route: 048
     Dates: start: 20060701, end: 20080701

REACTIONS (1)
  - MYOCARDIAL INFARCTION [None]
